FAERS Safety Report 4608844-8 (Version None)
Quarter: 2005Q1

REPORT INFORMATION
  Report Type: 
  Country: None (occurrence: None)
  Receive Date: 20050315
  Receipt Date: 20050303
  Transmission Date: 20050727
  Serious: Yes (Hospitalization)
  Sender: FDA-Public Use
  Company Number: JP-GLAXOSMITHKLINE-B0373644A

PATIENT
  Age: 24 Year
  Sex: Female
  Weight: 85 kg

DRUGS (5)
  1. SEREVENT [Suspect]
     Indication: ASTHMA
     Dosage: 50MCG TWICE PER DAY
     Route: 055
     Dates: start: 20050105
  2. FLUTICASONE PROPIONATE [Suspect]
     Indication: ASTHMA
     Dosage: 100MCG TWICE PER DAY
     Route: 055
     Dates: start: 20050105
  3. BANAN [Concomitant]
     Route: 048
  4. EMPYNASE [Concomitant]
     Route: 048
  5. ISALON [Concomitant]
     Route: 048

REACTIONS (3)
  - LYMPHADENITIS [None]
  - PAIN [None]
  - PYREXIA [None]
